FAERS Safety Report 6786662-2 (Version None)
Quarter: 2010Q2

REPORT INFORMATION
  Report Type: 
  Country: None (occurrence: None)
  Receive Date: 20100623
  Receipt Date: 20100609
  Transmission Date: 20101027
  Serious: Yes (Other)
  Sender: FDA-Public Use
  Company Number: US-ELI_LILLY_AND_COMPANY-US201006003196

PATIENT
  Sex: Female

DRUGS (7)
  1. CYMBALTA [Suspect]
     Indication: MAJOR DEPRESSION
     Dosage: 90 MG, UNK
  2. CYMBALTA [Suspect]
     Dosage: 30 MG, UNK
     Dates: start: 20100610
  3. NAPROSYN [Concomitant]
  4. DARVOCET [Concomitant]
  5. TRAZODONE HYDROCHLORIDE [Concomitant]
  6. REQUIP [Concomitant]
  7. ABILIFY [Concomitant]

REACTIONS (6)
  - CONSTIPATION [None]
  - GOITRE [None]
  - HEPATITIS C [None]
  - MALAISE [None]
  - NAUSEA [None]
  - RESTLESS LEGS SYNDROME [None]
